FAERS Safety Report 7068051-9 (Version None)
Quarter: 2010Q4

REPORT INFORMATION
  Report Type: 
  Country: None (occurrence: None)
  Receive Date: 20101020
  Receipt Date: 20101004
  Transmission Date: 20110411
  Serious: Yes (Death)
  Sender: FDA-Public Use
  Company Number: 2010004391

PATIENT
  Age: 68 Year
  Sex: Male

DRUGS (7)
  1. ERLOTINIB HYDROCHLORIDE [Suspect]
     Indication: LUNG ADENOCARCINOMA
     Dosage: 150 MG, QD, ORAL
     Route: 048
     Dates: start: 20081209, end: 20100101
  2. MEDICON (DEXTROMETHORPHAN HYDROBROMIDE) [Concomitant]
  3. HUSTAGIN (PLANTAGO MAJOR) [Concomitant]
  4. NAUZELIN (DOMPERIDONE) [Concomitant]
  5. LANSOPRAZOLE [Concomitant]
  6. LASIX [Concomitant]
  7. GORE-TEX SOFT TISSUE PATCH [Concomitant]

REACTIONS (1)
  - DEATH [None]
